FAERS Safety Report 18526221 (Version 1)
Quarter: 2020Q4

REPORT INFORMATION
  Report Type: Spontaneous
  Country: US (occurrence: US)
  Receive Date: 20201120
  Receipt Date: 20201120
  Transmission Date: 20210114
  Serious: Yes (Other)
  Sender: FDA-Public Use
  Company Number: US-GLAXOSMITHKLINE-US2020AMR226321

PATIENT
  Age: 31 Year
  Sex: Female

DRUGS (2)
  1. BENLYSTA [Suspect]
     Active Substance: BELIMUMAB
     Indication: SYSTEMIC LUPUS ERYTHEMATOSUS
     Dosage: UNK
     Dates: start: 2019
  2. BENLYSTA [Suspect]
     Active Substance: BELIMUMAB
     Indication: SYSTEMIC LUPUS ERYTHEMATOSUS
     Dosage: UNK
     Dates: start: 20201111

REACTIONS (12)
  - Hypersomnia [Unknown]
  - Systemic lupus erythematosus [Unknown]
  - Nausea [Recovered/Resolved]
  - Chest pain [Unknown]
  - Dyspepsia [Recovering/Resolving]
  - Renal disorder [Unknown]
  - Blood iron decreased [Unknown]
  - Eructation [Unknown]
  - Constipation [Unknown]
  - Injection site pain [Unknown]
  - Liver disorder [Unknown]
  - Appetite disorder [Unknown]

NARRATIVE: CASE EVENT DATE: 20201111
